FAERS Safety Report 4736181-X (Version None)
Quarter: 2005Q3

REPORT INFORMATION
  Report Type: 
  Country: None (occurrence: None)
  Receive Date: 20050806
  Receipt Date: 20050708
  Transmission Date: 20060218
  Serious: Yes (Other)
  Sender: FDA-Public Use
  Company Number: PHRM2005FR02093

PATIENT
  Age: 68 Year
  Sex: Male
  Weight: 72 kg

DRUGS (4)
  1. PREVISCAN [Suspect]
     Dosage: 1 DF, QD
     Route: 048
  2. LAMISIL [Suspect]
     Indication: NAIL TINEA
     Dosage: 250 MG, QD
     Route: 048
     Dates: start: 20041031, end: 20041103
  3. DIAMICRON [Suspect]
     Dosage: 2 DF, QD
     Route: 048
  4. METFORMIN HCL [Suspect]
     Dosage: 3 DF DAILY

REACTIONS (2)
  - DRUG INTERACTION [None]
  - HAEMATURIA [None]
